FAERS Safety Report 7310894-8 (Version None)
Quarter: 2011Q1

REPORT INFORMATION
  Report Type: 
  Country: None (occurrence: None)
  Receive Date: 20110224
  Receipt Date: 20110215
  Transmission Date: 20110831
  Serious: Yes (Hospitalization, Other)
  Sender: FDA-Public Use
  Company Number: DE-TEVA-263322ISR

PATIENT
  Sex: Female

DRUGS (1)
  1. COPAXONE [Suspect]
     Indication: MULTIPLE SCLEROSIS
     Route: 058
     Dates: start: 20090512, end: 20101210

REACTIONS (4)
  - LEUKAEMIA [None]
  - OSTEOMYELITIS [None]
  - TOOTH LOSS [None]
  - PERIODONTITIS [None]
